FAERS Safety Report 14683756 (Version 5)
Quarter: 2019Q2

REPORT INFORMATION
  Report Type: Spontaneous
  Country: US (occurrence: US)
  Receive Date: 20180327
  Receipt Date: 20190424
  Transmission Date: 20190711
  Serious: Yes (Other)
  Sender: FDA-Public Use
  Company Number: US-ASTRAZENECA-2018SE34908

PATIENT
  Age: 21622 Day
  Sex: Male
  Weight: 70.3 kg

DRUGS (24)
  1. PROTONIX [Suspect]
     Active Substance: PANTOPRAZOLE SODIUM
     Indication: GASTROOESOPHAGEAL REFLUX DISEASE
     Route: 065
     Dates: start: 2015
  2. TUMS [Concomitant]
     Active Substance: CALCIUM CARBONATE
     Indication: BLOOD CHOLESTEROL
     Dosage: 4-6 PER DAY
     Route: 065
     Dates: start: 2004, end: 2008
  3. GABAPENTIN. [Concomitant]
     Active Substance: GABAPENTIN
     Indication: BLOOD CHOLESTEROL
     Route: 048
     Dates: start: 20160629
  4. METFORMIN [Concomitant]
     Active Substance: METFORMIN HYDROCHLORIDE
     Indication: BLOOD CHOLESTEROL
     Route: 065
     Dates: start: 2007, end: 2010
  5. ASPIRIN. [Concomitant]
     Active Substance: ASPIRIN
     Dates: start: 20180521
  6. TRICOR [Concomitant]
     Active Substance: FENOFIBRATE
  7. LYRICA [Concomitant]
     Active Substance: PREGABALIN
     Indication: NEURALGIA
     Route: 065
     Dates: start: 2013, end: 2016
  8. INSULIN [Concomitant]
     Active Substance: INSULIN NOS
     Indication: DIABETES MELLITUS
     Route: 065
     Dates: start: 2015
  9. CILOSTAZOL. [Concomitant]
     Active Substance: CILOSTAZOL
     Indication: BLOOD CHOLESTEROL
     Route: 065
  10. GLIPIZIDE. [Concomitant]
     Active Substance: GLIPIZIDE
     Indication: DIABETES MELLITUS
     Route: 065
     Dates: start: 2005, end: 2016
  11. CLOPIDOGREL [Concomitant]
     Active Substance: CLOPIDOGREL BISULFATE
     Indication: BLOOD CHOLESTEROL
     Route: 065
  12. NEXIUM [Suspect]
     Active Substance: ESOMEPRAZOLE MAGNESIUM
     Indication: GASTROOESOPHAGEAL REFLUX DISEASE
     Route: 048
     Dates: start: 2010, end: 2017
  13. ATORVASTATIN [Concomitant]
     Active Substance: ATORVASTATIN
     Indication: BLOOD CHOLESTEROL
     Route: 065
     Dates: start: 2012, end: 2016
  14. HUMALOG [Concomitant]
     Active Substance: INSULIN LISPRO
     Dates: start: 20180917
  15. AZOR [Concomitant]
     Active Substance: AMLODIPINE BESYLATE\OLMESARTAN MEDOXOMIL
     Indication: BLOOD PRESSURE MEASUREMENT
     Route: 065
     Dates: start: 2012, end: 2016
  16. WELLBUTRIN [Concomitant]
     Active Substance: BUPROPION HYDROCHLORIDE
     Indication: EX-TOBACCO USER
     Route: 065
     Dates: start: 2009, end: 2010
  17. VALTREX [Concomitant]
     Active Substance: VALACYCLOVIR HYDROCHLORIDE
     Indication: BLOOD CHOLESTEROL
     Route: 065
     Dates: start: 2007, end: 2010
  18. NEXIUM [Suspect]
     Active Substance: ESOMEPRAZOLE MAGNESIUM
     Indication: GASTROOESOPHAGEAL REFLUX DISEASE
     Dosage: GENERIC
     Route: 065
     Dates: start: 2010, end: 2017
  19. NEXIUM [Suspect]
     Active Substance: ESOMEPRAZOLE MAGNESIUM
     Indication: GASTROOESOPHAGEAL REFLUX DISEASE
     Route: 048
     Dates: start: 20130910
  20. OMEPRAZOLE. [Suspect]
     Active Substance: OMEPRAZOLE
     Indication: GASTROOESOPHAGEAL REFLUX DISEASE
     Route: 065
     Dates: start: 2017
  21. DICYCLOMINE [Concomitant]
     Active Substance: DICYCLOMINE HYDROCHLORIDE
     Dates: start: 20180917
  22. BACLOFEN. [Concomitant]
     Active Substance: BACLOFEN
  23. TYLENOL [Concomitant]
     Active Substance: ACETAMINOPHEN
     Indication: BLOOD CHOLESTEROL
     Route: 065
  24. GABAPENTIN. [Concomitant]
     Active Substance: GABAPENTIN
     Indication: BLOOD CHOLESTEROL
     Route: 065
     Dates: start: 2016

REACTIONS (4)
  - Chronic kidney disease [Not Recovered/Not Resolved]
  - Renal failure [Unknown]
  - Nephrogenic anaemia [Unknown]
  - Acute kidney injury [Not Recovered/Not Resolved]

NARRATIVE: CASE EVENT DATE: 20180514
